FAERS Safety Report 9293867 (Version 1)
Quarter: 2013Q1

REPORT INFORMATION
  Report Type: Spontaneous
  Country: US (occurrence: None)
  Receive Date: 20121217
  Receipt Date: 20121217
  Transmission Date: 20140127
  Serious: Yes (Other)
  Sender: FDA-Public Use
  Company Number: 063921

PATIENT
  Sex: Female

DRUGS (4)
  1. ROTIGOTINE [Suspect]
     Indication: PARKINSON^S DISEASE
     Route: 062
     Dates: start: 20120813
  2. UNKNOWN [Concomitant]
  3. AZILECT [Concomitant]
  4. MIRAPEX [Concomitant]

REACTIONS (1)
  - Blood pressure increased [None]
